FAERS Safety Report 9855731 (Version 1)
Quarter: 2014Q1

REPORT INFORMATION
  Report Type: Spontaneous
  Country: KR (occurrence: KR)
  Receive Date: 20140130
  Receipt Date: 20140130
  Transmission Date: 20141002
  Serious: Yes (Other)
  Sender: FDA-Public Use
  Company Number: KR-PFIZER INC-2014023714

PATIENT
  Sex: 0

DRUGS (1)
  1. XALATAN [Suspect]

REACTIONS (2)
  - Intraocular pressure increased [Unknown]
  - Product formulation issue [Unknown]
